FAERS Safety Report 13898720 (Version 3)
Quarter: 2017Q4

REPORT INFORMATION
  Report Type: Spontaneous
  Country: US (occurrence: US)
  Receive Date: 20170823
  Receipt Date: 20171031
  Transmission Date: 20180320
  Serious: Yes (Hospitalization)
  Sender: FDA-Public Use
  Company Number: US-ACTELION-A-NJ2017-158374

PATIENT
  Age: 60 Year
  Sex: Male
  Weight: 114.29 kg

DRUGS (5)
  1. REVATIO [Concomitant]
     Active Substance: SILDENAFIL CITRATE
     Dosage: 20 MG, TID
  2. OPSUMIT [Suspect]
     Active Substance: MACITENTAN
     Indication: PULMONARY ARTERIAL HYPERTENSION
     Dosage: 10 MG, QD
     Route: 048
     Dates: start: 20170802
  3. ADCIRCA [Concomitant]
     Active Substance: TADALAFIL
  4. ELIQUIS [Concomitant]
     Active Substance: APIXABAN
  5. REMODULIN [Concomitant]
     Active Substance: TREPROSTINIL
     Dosage: 40 KG, PER MIN
     Route: 042

REACTIONS (7)
  - Heart rate increased [Recovered/Resolved]
  - Oedema [Recovering/Resolving]
  - Fluid overload [Recovering/Resolving]
  - Cellulitis [Unknown]
  - Pulmonary arterial hypertension [Unknown]
  - Abscess [Unknown]
  - Condition aggravated [Unknown]
